FAERS Safety Report 7109881-4 (Version None)
Quarter: 2010Q4

REPORT INFORMATION
  Report Type: 
  Country: None (occurrence: None)
  Receive Date: 20101116
  Receipt Date: 20101116
  Transmission Date: 20110411
  Serious: Yes (Hospitalization)
  Sender: FDA-Public Use
  Company Number: None

PATIENT
  Age: 65 Year
  Sex: Female
  Weight: 90.7194 kg

DRUGS (1)
  1. FOSAMAX [Suspect]
     Indication: OSTEOPOROSIS
     Dosage: ONE EVERY WEEK PO
     Route: 048

REACTIONS (4)
  - FALL [None]
  - FEMUR FRACTURE [None]
  - GROIN PAIN [None]
  - PATHOLOGICAL FRACTURE [None]
